FAERS Safety Report 4999267-0 (Version None)
Quarter: 2006Q2

REPORT INFORMATION
  Report Type: 
  Country: None (occurrence: None)
  Receive Date: 20060510
  Receipt Date: 20060510
  Transmission Date: 20061013
  Serious: Yes (Hospitalization)
  Sender: FDA-Public Use
  Company Number: None

PATIENT
  Age: 84 Year
  Sex: Male
  Weight: 78.0187 kg

DRUGS (13)
  1. LISINOPRIL [Suspect]
     Indication: ANGINA PECTORIS
     Dosage: 2.5 MG DAILY PO
     Route: 048
     Dates: start: 20060426, end: 20060509
  2. ISOSORBIDE [Suspect]
     Dosage: 10 MG TID PO
     Route: 048
     Dates: start: 20060426, end: 20060429
  3. OMEPRAZOLE [Concomitant]
  4. ACETAMNOPHEN [Concomitant]
  5. ALPROSTADIL [Concomitant]
  6. TERAZOSIN HCL [Concomitant]
  7. HYALURONATE [Concomitant]
  8. ASPIRIN [Concomitant]
  9. ISOSORBIDE [Concomitant]
  10. LISINOPRIL [Concomitant]
  11. METOPROLOL TARTRATE [Concomitant]
  12. NITROGLYCERIN [Concomitant]
  13. SIMVASTATIN [Concomitant]

REACTIONS (10)
  - ASTHENIA [None]
  - CHEST PAIN [None]
  - DILATATION VENTRICULAR [None]
  - DIZZINESS [None]
  - EJECTION FRACTION DECREASED [None]
  - HEART RATE DECREASED [None]
  - HYPOTENSION [None]
  - MYOCARDIAL INFARCTION [None]
  - MYOCARDIAL ISCHAEMIA [None]
  - VISION BLURRED [None]
